FAERS Safety Report 7372603-6 (Version None)
Quarter: 2011Q1

REPORT INFORMATION
  Report Type: 
  Country: None (occurrence: None)
  Receive Date: 20110324
  Receipt Date: 20110314
  Transmission Date: 20110831
  Serious: Yes (Disabling)
  Sender: FDA-Public Use
  Company Number: US-MERCK-1007USA00521

PATIENT
  Age: 57 Year
  Sex: Female
  Weight: 60 kg

DRUGS (3)
  1. FOSAMAX [Suspect]
     Indication: OSTEOPOROSIS
     Route: 048
     Dates: start: 20000101, end: 20000101
  2. BONIVA [Suspect]
     Indication: OSTEOPOROSIS
     Route: 048
     Dates: start: 20060101, end: 20080101
  3. FOSAMAX [Suspect]
     Route: 048
     Dates: start: 20000101, end: 20060101

REACTIONS (12)
  - OSTEONECROSIS OF JAW [None]
  - ALVEOLAR OSTEITIS [None]
  - TOOTH FRACTURE [None]
  - OVERDOSE [None]
  - TOOTH DISORDER [None]
  - JAW DISORDER [None]
  - LIMB INJURY [None]
  - LYMPHADENOPATHY [None]
  - EXOSTOSIS [None]
  - IMPAIRED HEALING [None]
  - GINGIVAL DISORDER [None]
  - PULPITIS DENTAL [None]
